FAERS Safety Report 16635452 (Version 1)
Quarter: 2019Q3

REPORT INFORMATION
  Report Type: Spontaneous
  Country: FR (occurrence: FR)
  Receive Date: 20190726
  Receipt Date: 20190726
  Transmission Date: 20191004
  Serious: Yes (Other)
  Sender: FDA-Public Use
  Company Number: FR-ASTRAZENECA-2019SF04913

PATIENT
  Age: 0 Day
  Sex: Female
  Weight: 2.7 kg

DRUGS (6)
  1. PRIMPERAN [Suspect]
     Active Substance: METOCLOPRAMIDE HYDROCHLORIDE
     Indication: MORNING SICKNESS
     Route: 064
     Dates: start: 201708, end: 20171015
  2. LOVENOX [Suspect]
     Active Substance: ENOXAPARIN SODIUM
     Indication: PULMONARY EMBOLISM
     Route: 064
     Dates: start: 20170807, end: 20170807
  3. SPASFON (PHLOROGLUCINOL\TRIMETHYLPHLOROGLUCINOL) [Suspect]
     Active Substance: PHLOROGLUCINOL\1,3,5-TRIMETHOXYBENZENE
     Indication: PRODUCT USED FOR UNKNOWN INDICATION
     Route: 064
     Dates: start: 201708, end: 20171015
  4. XENETIX [Suspect]
     Active Substance: IOBITRIDOL
     Indication: SCAN WITH CONTRAST
     Dosage: ONCE/SINGLE ADMINISTRATION
     Route: 064
     Dates: start: 20170807, end: 20170807
  5. TARDYFERON [Suspect]
     Active Substance: FERROUS SULFATE
     Indication: IRON DEFICIENCY
     Route: 064
     Dates: start: 201708, end: 20171015
  6. INEXIUM [Suspect]
     Active Substance: ESOMEPRAZOLE
     Indication: PRODUCT USED FOR UNKNOWN INDICATION
     Route: 064
     Dates: start: 20170807, end: 20171015

REACTIONS (3)
  - Low birth weight baby [Not Recovered/Not Resolved]
  - Placental disorder [Not Recovered/Not Resolved]
  - Oligohydramnios [Not Recovered/Not Resolved]

NARRATIVE: CASE EVENT DATE: 20170815
